FAERS Safety Report 6543017-3 (Version None)
Quarter: 2010Q1

REPORT INFORMATION
  Report Type: 
  Country: None (occurrence: None)
  Receive Date: 20100120
  Receipt Date: 20100114
  Transmission Date: 20100710
  Serious: Yes (Hospitalization)
  Sender: FDA-Public Use
  Company Number: DE-ROCHE-680059

PATIENT
  Age: 65 Year
  Sex: Female

DRUGS (3)
  1. CELLCEPT [Suspect]
     Indication: RENAL TRANSPLANT
     Route: 065
     Dates: end: 20091105
  2. CELLCEPT [Suspect]
     Route: 065
     Dates: start: 20100101
  3. VALCYTE [Suspect]
     Indication: DRUG USE FOR UNKNOWN INDICATION
     Route: 065
     Dates: end: 20091105

REACTIONS (2)
  - ERYTHEMA NODOSUM [None]
  - NEUTROPENIA [None]
